FAERS Safety Report 8414613-3 (Version None)
Quarter: 2012Q2

REPORT INFORMATION
  Report Type: 
  Country: None (occurrence: None)
  Receive Date: 20120605
  Receipt Date: 20120530
  Transmission Date: 20120825
  Serious: Yes (Hospitalization)
  Sender: FDA-Public Use
  Company Number: US-ROCHE-1073966

PATIENT
  Sex: Male

DRUGS (8)
  1. ASCORBIC ACID [Concomitant]
  2. KEPPRA [Concomitant]
  3. BORTEZOMIB [Suspect]
     Indication: GLIOBLASTOMA MULTIFORME
     Route: 042
     Dates: start: 20100427, end: 20100713
  4. ZINC SULFATE [Concomitant]
  5. PROVIGIL [Concomitant]
  6. FINASTERIDE [Concomitant]
  7. CELEXA [Concomitant]
  8. AVASTIN [Suspect]
     Indication: GLIOBLASTOMA MULTIFORME
     Route: 042
     Dates: start: 20100427

REACTIONS (3)
  - PNEUMONIA [None]
  - CONVULSION [None]
  - PYREXIA [None]
